FAERS Safety Report 10308241 (Version 3)
Quarter: 2014Q4

REPORT INFORMATION
  Report Type: Spontaneous
  Country: CA (occurrence: None)
  Receive Date: 20140711
  Receipt Date: 20141014
  Transmission Date: 20150528
  Serious: Yes (Other)
  Sender: FDA-Public Use
  Company Number: 2014-002021

PATIENT
  Age: 66 Year
  Sex: Female
  Weight: 50 kg

DRUGS (6)
  1. ACTONEL [Suspect]
     Active Substance: RISEDRONATE SODIUM
     Indication: OSTEOPOROSIS
     Route: 048
     Dates: start: 19970917, end: 20130620
  2. CALCIUM [Concomitant]
     Active Substance: CALCIUM
  3. VITAMIN D (COLECALCIFEROL) [Concomitant]
  4. HYDROCHLOROTHIAZIDE. [Concomitant]
     Active Substance: HYDROCHLOROTHIAZIDE
  5. METFORMIN [Concomitant]
     Active Substance: METFORMIN HYDROCHLORIDE
  6. ACETAMINOPHEN (PARACETAMOL) [Concomitant]
     Active Substance: ACETAMINOPHEN

REACTIONS (4)
  - Eye pain [None]
  - Visual acuity reduced [None]
  - Cataract [None]
  - Dry eye [None]

NARRATIVE: CASE EVENT DATE: 2013
